FAERS Safety Report 12110158 (Version 2)
Quarter: 2016Q2

REPORT INFORMATION
  Report Type: Spontaneous
  Country: US (occurrence: US)
  Receive Date: 20160224
  Receipt Date: 20160419
  Transmission Date: 20160815
  Serious: No
  Sender: FDA-Public Use
  Company Number: US-LEO PHARMA-240342

PATIENT
  Sex: Male

DRUGS (1)
  1. PICATO [Suspect]
     Active Substance: INGENOL MEBUTATE
     Indication: ACTINIC KERATOSIS
     Route: 061
     Dates: start: 20160214, end: 20160216

REACTIONS (10)
  - Application site warmth [Recovered/Resolved]
  - Application site induration [Recovered/Resolved]
  - Drug administration error [Unknown]
  - Ocular hyperaemia [Recovered/Resolved]
  - Drug administered at inappropriate site [Unknown]
  - Accidental exposure to product [Unknown]
  - Application site vesicles [Recovered/Resolved]
  - Eyelid ptosis [Recovered/Resolved]
  - Application site scab [Recovered/Resolved]
  - Eye swelling [Recovered/Resolved]

NARRATIVE: CASE EVENT DATE: 20160214
